FAERS Safety Report 6366209-5 (Version None)
Quarter: 2009Q3

REPORT INFORMATION
  Report Type: 
  Country: None (occurrence: None)
  Receive Date: 20090915
  Receipt Date: 20090903
  Transmission Date: 20100115
  Serious: Yes (Other)
  Sender: FDA-Public Use
  Company Number: 2009EU003414

PATIENT
  Age: 70 Year
  Sex: Male
  Weight: 79 kg

DRUGS (2)
  1. VESICARE [Suspect]
     Indication: HYPERTONIC BLADDER
     Dosage: 10 MG, UID/QD, ORAL; 5 MG, UID/QD, ORAL
     Route: 048
     Dates: start: 20080902, end: 20080901
  2. VESICARE [Suspect]
     Indication: HYPERTONIC BLADDER
     Dosage: 10 MG, UID/QD, ORAL; 5 MG, UID/QD, ORAL
     Route: 048
     Dates: start: 20080801, end: 20090701

REACTIONS (1)
  - ECZEMA [None]
